FAERS Safety Report 19449630 (Version 1)
Quarter: 2021Q2

REPORT INFORMATION
  Report Type: Spontaneous
  Country: US (occurrence: US)
  Receive Date: 20210622
  Receipt Date: 20210622
  Transmission Date: 20210717
  Serious: No
  Sender: FDA-Public Use
  Company Number: US-B.I. PHARMACEUTICALS,INC./RIDGEFIELD-2021-BI-104958

PATIENT
  Age: 62 Year
  Sex: Male

DRUGS (3)
  1. SYNJARDY XR [Suspect]
     Active Substance: EMPAGLIFLOZIN\METFORMIN HYDROCHLORIDE
     Indication: GLYCOSYLATED HAEMOGLOBIN INCREASED
     Dosage: 12.5MG/1000 MCG ONCE DAILY
     Dates: start: 202101
  2. TRULICITY [Concomitant]
     Active Substance: DULAGLUTIDE
     Indication: GLYCOSYLATED HAEMOGLOBIN INCREASED
     Dosage: 1.5MG/.5ML ONCE WEEKLY
     Dates: start: 202101
  3. TRULICITY [Concomitant]
     Active Substance: DULAGLUTIDE
     Indication: PRODUCT USED FOR UNKNOWN INDICATION
     Dosage: 1.5 MG AS DIRECTED

REACTIONS (2)
  - Glomerular filtration rate abnormal [Not Recovered/Not Resolved]
  - Glomerular filtration rate decreased [Unknown]

NARRATIVE: CASE EVENT DATE: 2020
